FAERS Safety Report 9052873 (Version 1)
Quarter: 2013Q1

REPORT INFORMATION
  Report Type: Spontaneous
  Country: US (occurrence: US)
  Receive Date: 20130207
  Receipt Date: 20130207
  Transmission Date: 20140127
  Serious: Yes (Death)
  Sender: FDA-Public Use
  Company Number: CHPA2013US002575

PATIENT
  Age: 38 Year
  Sex: Male

DRUGS (7)
  1. DIPHENHYDRAMINE [Suspect]
     Dosage: UNK, UNK
     Route: 048
  2. BENZODIAZEPINES [Suspect]
     Dosage: UNK, UNK
     Route: 048
  3. ZIPRASIDONE [Suspect]
     Dosage: UNK, UNK
     Route: 048
  4. QUETIAPINE [Suspect]
     Dosage: UNK, UNK
     Route: 048
  5. DULOXETINE [Suspect]
     Dosage: UNK, UNK
     Route: 048
  6. LAMOTRIGINE [Suspect]
     Dosage: UNK, UNK
     Route: 048
  7. MIRTAZAPINE [Suspect]
     Dosage: UNK, UNK
     Route: 048

REACTIONS (1)
  - Completed suicide [Fatal]
